FAERS Safety Report 21732394 (Version 9)
Quarter: 2023Q4

REPORT INFORMATION
  Report Type: Other
  Country: CA (occurrence: None)
  Receive Date: 20221215
  Receipt Date: 20231103
  Transmission Date: 20240109
  Serious: Yes (Other)
  Sender: FDA-Public Use
  Company Number: CA-ROCHE-2748591

PATIENT
  Age: 36 Year
  Sex: Female

DRUGS (12)
  1. OCREVUS [Suspect]
     Active Substance: OCRELIZUMAB
     Indication: Relapsing-remitting multiple sclerosis
     Dosage: 300 MG AT DAY 0 AND 14, THEN 600 MG EVERY 6 MONTH. LAST DOSE ON 22/JAN/2021
     Route: 042
     Dates: start: 20210108
  2. MODAFINIL [Concomitant]
     Active Substance: MODAFINIL
  3. GABAPENTIN [Concomitant]
     Active Substance: GABAPENTIN
  4. NORTRIPTYLINE [Concomitant]
     Active Substance: NORTRIPTYLINE
  5. BACLOFEN [Concomitant]
     Active Substance: BACLOFEN
  6. CYCLOBENZAPRINE [Concomitant]
     Active Substance: CYCLOBENZAPRINE
  7. ACETAMINOPHEN\TRAMADOL [Concomitant]
     Active Substance: ACETAMINOPHEN\TRAMADOL
  8. CARBAMAZEPINE [Concomitant]
     Active Substance: CARBAMAZEPINE
  9. VALACYCLOVIR [Concomitant]
     Active Substance: VALACYCLOVIR HYDROCHLORIDE
     Indication: Oral herpes
  10. BUTRANS [Concomitant]
     Active Substance: BUPRENORPHINE
  11. NABILONE [Concomitant]
     Active Substance: NABILONE
  12. ORILISSA [Concomitant]
     Active Substance: ELAGOLIX SODIUM

REACTIONS (30)
  - Pharyngeal mass [Recovered/Resolved]
  - Ankle fracture [Recovering/Resolving]
  - Infusion related reaction [Recovered/Resolved with Sequelae]
  - Feeling abnormal [Recovering/Resolving]
  - Asthenia [Recovering/Resolving]
  - Headache [Not Recovered/Not Resolved]
  - Fatigue [Unknown]
  - Illness [Unknown]
  - Dyspnoea [Unknown]
  - Depression [Not Recovered/Not Resolved]
  - Emotional distress [Not Recovered/Not Resolved]
  - Muscular weakness [Not Recovered/Not Resolved]
  - Pain [Recovered/Resolved]
  - Inflammation [Not Recovered/Not Resolved]
  - Fungal skin infection [Recovered/Resolved]
  - Endometriosis [Unknown]
  - Skin infection [Unknown]
  - Irritable bowel syndrome [Not Recovered/Not Resolved]
  - Constipation [Not Recovered/Not Resolved]
  - Throat irritation [Recovered/Resolved]
  - Lower limb fracture [Recovered/Resolved]
  - COVID-19 [Not Recovered/Not Resolved]
  - Blister [Unknown]
  - Gastrointestinal disorder [Not Recovered/Not Resolved]
  - Multiple sclerosis [Not Recovered/Not Resolved]
  - Fibromyalgia [Not Recovered/Not Resolved]
  - Gastrointestinal disorder [Not Recovered/Not Resolved]
  - Diarrhoea [Not Recovered/Not Resolved]
  - Influenza [Not Recovered/Not Resolved]
  - Influenza [Unknown]

NARRATIVE: CASE EVENT DATE: 20210108
